FAERS Safety Report 14426375 (Version 2)
Quarter: 2018Q4

REPORT INFORMATION
  Report Type: Spontaneous
  Country: US (occurrence: US)
  Receive Date: 20180123
  Receipt Date: 20181128
  Transmission Date: 20190204
  Serious: No
  Sender: FDA-Public Use
  Company Number: US-ROCHE-2021214

PATIENT
  Sex: Female

DRUGS (1)
  1. OCREVUS [Suspect]
     Active Substance: OCRELIZUMAB
     Indication: RELAPSING-REMITTING MULTIPLE SCLEROSIS
     Route: 042
     Dates: start: 201705

REACTIONS (5)
  - Headache [Unknown]
  - Malaise [Unknown]
  - Fatigue [Unknown]
  - Narcolepsy [Not Recovered/Not Resolved]
  - Insomnia [Not Recovered/Not Resolved]
